FAERS Safety Report 13056394 (Version 1)
Quarter: 2016Q4

REPORT INFORMATION
  Report Type: Report from Study
  Country: None (occurrence: AR)
  Receive Date: 20161222
  Receipt Date: 20161222
  Transmission Date: 20170207
  Serious: Yes (Other)
  Sender: FDA-Public Use
  Company Number: AR-ABBVIE-16P-007-1819345-00

PATIENT
  Age: 64 Year

DRUGS (1)
  1. VIEKIRA PAK [Suspect]
     Active Substance: DASABUVIR\OMBITASVIR\PARITAPREVIR\RITONAVIR
     Indication: HEPATITIS C
     Dosage: 3 DURING THE MORNING AND ONE AT NIGHT
     Route: 048
     Dates: start: 20161121

REACTIONS (5)
  - Agitation [Unknown]
  - Rash macular [Unknown]
  - Pruritus [Unknown]
  - Hepatic cyst [Unknown]
  - Fatigue [Unknown]

NARRATIVE: CASE EVENT DATE: 201611
